FAERS Safety Report 4353187-3 (Version None)
Quarter: 2004Q2

REPORT INFORMATION
  Report Type: 
  Country: None (occurrence: None)
  Receive Date: 20040503
  Receipt Date: 20040503
  Transmission Date: 20050107
  Serious: Yes (Hospitalization)
  Sender: FDA-Public Use
  Company Number: None

PATIENT
  Sex: Male

DRUGS (3)
  1. LISINOPRIL [Suspect]
     Dosage: 10 MG QD
     Dates: start: 20020501, end: 20040101
  2. RABEPRAZOLE SODIUM [Concomitant]
  3. METOPROLOL [Concomitant]

REACTIONS (1)
  - ANGIONEUROTIC OEDEMA [None]
